FAERS Safety Report 7981475-8 (Version None)
Quarter: 2011Q4

REPORT INFORMATION
  Report Type: 
  Country: None (occurrence: None)
  Receive Date: 20111215
  Receipt Date: 20111209
  Transmission Date: 20120403
  Serious: Yes (Other)
  Sender: FDA-Public Use
  Company Number: JP-PFIZER INC-2011300262

PATIENT
  Sex: Female

DRUGS (1)
  1. ZITHROMAX [Suspect]
     Indication: PERTUSSIS
     Dosage: 2 G, SINGLE
     Route: 048

REACTIONS (3)
  - DIZZINESS [None]
  - PRIMARY CEREBELLAR DEGENERATION [None]
  - CONSTIPATION [None]
